FAERS Safety Report 5425242-8 (Version None)
Quarter: 2007Q3

REPORT INFORMATION
  Report Type: 
  Country: None (occurrence: None)
  Receive Date: 20070824
  Receipt Date: 20070813
  Transmission Date: 20080115
  Serious: Yes (Hospitalization, Other)
  Sender: FDA-Public Use
  Company Number: US-PFIZER INC-2006103315

PATIENT
  Sex: Female

DRUGS (2)
  1. BEXTRA [Suspect]
     Indication: PAIN
  2. CELEBREX [Suspect]
     Indication: PAIN
     Dates: start: 20020815, end: 20030103

REACTIONS (1)
  - CEREBROVASCULAR ACCIDENT [None]
